FAERS Safety Report 9001660 (Version 1)
Quarter: 2013Q1

REPORT INFORMATION
  Report Type: Spontaneous
  Country: US (occurrence: US)
  Receive Date: 20130107
  Receipt Date: 20130107
  Transmission Date: 20140127
  Serious: Yes (Hospitalization)
  Sender: FDA-Public Use
  Company Number: US-009507513-1301USA002107

PATIENT
  Age: 7 Year
  Sex: Male

DRUGS (3)
  1. MONTELUKAST SODIUM [Suspect]
     Indication: ASTHMA
     Route: 048
  2. SEROQUEL [Suspect]
  3. SERETIDE [Concomitant]
     Dosage: 25/5 MICROGRAM, UNK
     Route: 055

REACTIONS (4)
  - Speech disorder [Unknown]
  - Somnolence [Unknown]
  - Medication error [Unknown]
  - Gait disturbance [Unknown]
